FAERS Safety Report 20289737 (Version 1)
Quarter: 2022Q1

REPORT INFORMATION
  Report Type: Report from Study
  Country: US (occurrence: US)
  Receive Date: 20220104
  Receipt Date: 20220104
  Transmission Date: 20220423
  Serious: Yes (Hospitalization)
  Sender: FDA-Public Use
  Company Number: US-BAYER-2022A000560

PATIENT
  Age: 65 Year
  Sex: Female

DRUGS (1)
  1. ADEMPAS [Suspect]
     Active Substance: RIOCIGUAT
     Indication: Pulmonary arterial hypertension
     Dosage: 2 MG
     Route: 048

REACTIONS (3)
  - Loss of consciousness [None]
  - Confusional state [Unknown]
  - Product dose omission issue [None]

NARRATIVE: CASE EVENT DATE: 20220102
